FAERS Safety Report 8923213 (Version 1)
Quarter: 2012Q4

REPORT INFORMATION
  Report Type: Spontaneous
  Country: US (occurrence: None)
  Receive Date: 20121115
  Receipt Date: 20121115
  Transmission Date: 20130627
  Serious: Yes (Other)
  Sender: FDA-Public Use
  Company Number: TPA2012A08951

PATIENT
  Age: 84 Year
  Sex: Male

DRUGS (1)
  1. EDARBI [Suspect]

REACTIONS (1)
  - Pancreatic carcinoma [None]
